FAERS Safety Report 23451356 (Version 2)
Quarter: 2024Q1

REPORT INFORMATION
  Report Type: Spontaneous
  Country: CN (occurrence: CN)
  Receive Date: 20240129
  Receipt Date: 20240131
  Transmission Date: 20240410
  Serious: Yes (Life-Threatening, Other)
  Sender: FDA-Public Use
  Company Number: CN-MLMSERVICE-20240117-4779452-1

PATIENT
  Age: 39 Year
  Sex: Male

DRUGS (4)
  1. PACLITAXEL [Suspect]
     Active Substance: PACLITAXEL
     Indication: Gastric cancer stage IV
     Dosage: 180 MG, CYCLIC (DAYS 1, 8)
     Route: 033
     Dates: start: 20190413, end: 20190426
  2. PACLITAXEL [Suspect]
     Active Substance: PACLITAXEL
     Dosage: 300 MG, 1 CYCLE LASTING FOR 21 DAYS, 5 CYCLES
     Route: 042
     Dates: start: 20190515, end: 20190717
  3. TS-1 [Suspect]
     Active Substance: GIMERACIL\OTERACIL POTASSIUM\TEGAFUR
     Indication: Gastric cancer stage IV
     Dosage: 120 MG, CYCLIC (DAYS 1-14)
     Route: 033
     Dates: start: 20190413, end: 20190426
  4. TS-1 [Suspect]
     Active Substance: GIMERACIL\OTERACIL POTASSIUM\TEGAFUR
     Dosage: 60 MG, TWICE/DAY, ORALLY (DAYS 1-14), WITH 1 CYCLE LASTING FOR 21 DAYS, 5 CYCLES
     Route: 048
     Dates: start: 20190515, end: 20190717

REACTIONS (5)
  - Leukopenia [Unknown]
  - Vomiting [Unknown]
  - Nausea [Unknown]
  - Off label use [Unknown]
  - Off label use [Unknown]

NARRATIVE: CASE EVENT DATE: 20190101
